FAERS Safety Report 13730313 (Version 2)
Quarter: 2017Q3

REPORT INFORMATION
  Report Type: Spontaneous
  Country: US (occurrence: US)
  Receive Date: 20170707
  Receipt Date: 20170922
  Transmission Date: 20171127
  Serious: Yes (Other)
  Sender: FDA-Public Use
  Company Number: US-JNJFOC-20170522110

PATIENT
  Age: 76 Year
  Sex: Male
  Weight: 81.65 kg

DRUGS (2)
  1. XARELTO [Suspect]
     Active Substance: RIVAROXABAN
     Indication: THROMBOSIS PROPHYLAXIS
     Dosage: NDC5045-0580-10
     Route: 048
     Dates: start: 20170419, end: 20170421
  2. XARELTO [Suspect]
     Active Substance: RIVAROXABAN
     Indication: THROMBOSIS PROPHYLAXIS
     Route: 048

REACTIONS (5)
  - Haemorrhage [Unknown]
  - Urticaria [Recovered/Resolved]
  - Haemorrhoidal haemorrhage [Recovered/Resolved]
  - Epistaxis [Recovered/Resolved]
  - Faeces discoloured [Recovered/Resolved]

NARRATIVE: CASE EVENT DATE: 20170421
